FAERS Safety Report 4632143-1 (Version None)
Quarter: 2005Q2

REPORT INFORMATION
  Report Type: 
  Country: None (occurrence: None)
  Receive Date: 20050411
  Receipt Date: 20041210
  Transmission Date: 20051028
  Serious: Yes (Death)
  Sender: FDA-Public Use
  Company Number: US-AMGEN-US103082

PATIENT
  Sex: Female
  Weight: 51.3 kg

DRUGS (1)
  1. PROCRIT [Suspect]
     Indication: ANAEMIA OF MALIGNANT DISEASE
     Dates: start: 20040514, end: 20041126

REACTIONS (2)
  - MALIGNANT NEOPLASM PROGRESSION [None]
  - THYROID CANCER METASTATIC [None]
